FAERS Safety Report 4369680-3 (Version None)
Quarter: 2004Q2

REPORT INFORMATION
  Report Type: 
  Country: None (occurrence: None)
  Receive Date: 20040603
  Receipt Date: 20040517
  Transmission Date: 20050107
  Serious: Yes (Hospitalization)
  Sender: FDA-Public Use
  Company Number: IE-ROCHE-368194

PATIENT
  Age: 28 Year
  Sex: Female
  Weight: 70 kg

DRUGS (4)
  1. XENICAL [Suspect]
     Indication: OBESITY
     Route: 065
     Dates: start: 20020622
  2. XENICAL [Suspect]
     Route: 065
     Dates: start: 20040115
  3. YASMIN [Suspect]
     Route: 048
     Dates: start: 20030812, end: 20040215
  4. THYROID TAB [Concomitant]
     Indication: HYPOTHYROIDISM
     Dosage: DOSE STATED AS 50 AND 100 AS DIRECTED PER BLOOD.
     Route: 048
     Dates: start: 20020621

REACTIONS (1)
  - CHOLELITHIASIS [None]
